FAERS Safety Report 16379642 (Version 1)
Quarter: 2019Q2

REPORT INFORMATION
  Report Type: Spontaneous
  Country: US (occurrence: US)
  Receive Date: 20190531
  Receipt Date: 20190531
  Transmission Date: 20190711
  Serious: Yes (Other)
  Sender: FDA-Public Use
  Company Number: US-GEHC-2019CSU002841

PATIENT
  Age: 60 Year
  Sex: Female

DRUGS (8)
  1. METHOTREXATE. [Suspect]
     Active Substance: METHOTREXATE
     Indication: CHEMOTHERAPY
     Dosage: 1000MG/M2
  2. LISINOPRIL. [Suspect]
     Active Substance: LISINOPRIL
  3. OMNIPAQUE [Suspect]
     Active Substance: IOHEXOL
     Indication: COMPUTERISED TOMOGRAM THORAX
     Dosage: 100 ML, SINGLE
     Route: 042
  4. OMNIPAQUE [Suspect]
     Active Substance: IOHEXOL
     Indication: FUNGAL INFECTION
  5. LORAZEPAM. [Concomitant]
     Active Substance: LORAZEPAM
  6. AMIODARONE [Concomitant]
     Active Substance: AMIODARONE
  7. VORICONAZOLE. [Concomitant]
     Active Substance: VORICONAZOLE
  8. METOPROLOL. [Concomitant]
     Active Substance: METOPROLOL

REACTIONS (2)
  - Toxicity to various agents [Recovered/Resolved]
  - Nephropathy toxic [Recovered/Resolved]
